FAERS Safety Report 23431472 (Version 1)
Quarter: 2024Q1

REPORT INFORMATION
  Report Type: Spontaneous
  Country: US (occurrence: US)
  Receive Date: 20240123
  Receipt Date: 20240123
  Transmission Date: 20240410
  Serious: Yes (Life-Threatening, Hospitalization)
  Sender: FDA-Public Use
  Company Number: US-STRIDES ARCOLAB LIMITED-2024SP000781

PATIENT
  Age: 49 Year
  Sex: Male

DRUGS (2)
  1. CABERGOLINE [Suspect]
     Active Substance: CABERGOLINE
     Indication: Prolactin-producing pituitary tumour
     Dosage: 0.25 MILLIGRAM, 2 TIMES A WEEK
     Route: 065
  2. CABERGOLINE [Suspect]
     Active Substance: CABERGOLINE
     Indication: Tumour invasion
     Dosage: UNK, (RESTARTED MULTIPLE TIMES)
     Route: 065

REACTIONS (2)
  - Pneumocephalus [Unknown]
  - Cerebrospinal fluid leakage [Unknown]
